FAERS Safety Report 5355322-7 (Version None)
Quarter: 2007Q2

REPORT INFORMATION
  Report Type: 
  Country: None (occurrence: None)
  Receive Date: 20070613
  Receipt Date: 20070605
  Transmission Date: 20071010
  Serious: Yes (Life-Threatening)
  Sender: FDA-Public Use
  Company Number: GB-BAYER-200710628BNE

PATIENT
  Age: 59 Year
  Sex: Female

DRUGS (6)
  1. CIPROFLOXACIN [Suspect]
     Indication: CHOLECYSTITIS
     Route: 048
     Dates: start: 20070511, end: 20070511
  2. GENTAMICIN [Suspect]
     Indication: CHOLECYSTITIS
     Route: 042
     Dates: start: 20070512, end: 20070513
  3. LOSARTAN [Suspect]
     Indication: HYPERTENSION
     Route: 048
     Dates: end: 20070518
  4. ORAMORPH SR [Suspect]
     Indication: PAIN
     Route: 048
     Dates: start: 20070512, end: 20070515
  5. FERROUS SULFATE TAB [Concomitant]
     Indication: HAEMOGLOBIN DECREASED
     Route: 048
  6. LEVOTHYROXINE SODIUM [Concomitant]
     Indication: THYROID DISORDER
     Route: 048

REACTIONS (4)
  - DYSPNOEA [None]
  - HEPATITIS [None]
  - RASH PRURITIC [None]
  - SWOLLEN TONGUE [None]
